FAERS Safety Report 7881753-7 (Version None)
Quarter: 2011Q4

REPORT INFORMATION
  Report Type: 
  Country: None (occurrence: None)
  Receive Date: 20111101
  Receipt Date: 20110526
  Transmission Date: 20120403
  Serious: No
  Sender: FDA-Public Use
  Company Number: US-AMGEN-USASP2011027489

PATIENT
  Age: 63 Year
  Sex: Female

DRUGS (5)
  1. FOLIC ACID [Concomitant]
  2. TYLENOL SINUS N/D [Concomitant]
  3. ENBREL [Suspect]
     Indication: PRODUCT USED FOR UNKNOWN INDICATION
     Dosage: 50 MG, QWK
     Route: 058
  4. METHOTREXATE [Concomitant]
     Dosage: 2.5 MG, UNK
  5. TRAMADOL HCL [Concomitant]
     Dosage: 50 MG, UNK

REACTIONS (1)
  - SINUS HEADACHE [None]
